FAERS Safety Report 9840727 (Version 1)
Quarter: 2013Q4

REPORT INFORMATION
  Report Type: Spontaneous
  Country: US (occurrence: None)
  Receive Date: 20131211
  Receipt Date: 20131211
  Transmission Date: 20140711
  Serious: Yes (Other)
  Sender: FDA-Public Use
  Company Number: SPV1-2010-01079

PATIENT
  Age: 29 Year
  Sex: Male

DRUGS (1)
  1. VPRIV [Suspect]
     Indication: GAUCHER^S DISEASE
     Dosage: UNK,1X2WKS, IV DRIP
     Route: 041
     Dates: start: 20100521

REACTIONS (1)
  - Abdominal pain [None]
